FAERS Safety Report 11826254 (Version 3)
Quarter: 2016Q3

REPORT INFORMATION
  Report Type: Report from Study
  Country: DE (occurrence: DE)
  Receive Date: 20151211
  Receipt Date: 20160826
  Transmission Date: 20161109
  Serious: Yes (Death, Life-Threatening, Hospitalization)
  Sender: FDA-Public Use
  Company Number: PHHY2015DE161701

PATIENT
  Age: 74 Year
  Sex: Female

DRUGS (1)
  1. SANDOSTATIN LAR DEPOT [Suspect]
     Active Substance: OCTREOTIDE ACETATE
     Indication: NEUROENDOCRINE TUMOUR
     Dosage: 30 MG, QMO (EVERY 28 DAYS)
     Route: 030
     Dates: start: 20150617

REACTIONS (7)
  - Loss of consciousness [Fatal]
  - Cardiovascular disorder [Fatal]
  - Blood glucose abnormal [Fatal]
  - Coma [Fatal]
  - General physical health deterioration [Fatal]
  - Fall [Fatal]
  - Unresponsive to stimuli [Fatal]

NARRATIVE: CASE EVENT DATE: 2015
